FAERS Safety Report 7938514-X (Version None)
Quarter: 2011Q4

REPORT INFORMATION
  Report Type: 
  Country: None (occurrence: None)
  Receive Date: 20111123
  Receipt Date: 20111116
  Transmission Date: 20120403
  Serious: Yes (Other)
  Sender: FDA-Public Use
  Company Number: US-ROCHE-792834

PATIENT
  Sex: Male
  Weight: 113.5 kg

DRUGS (4)
  1. ACCUTANE [Suspect]
     Indication: ACNE
     Route: 065
     Dates: start: 20000104, end: 20000209
  2. ACCUTANE [Suspect]
     Dates: start: 20000412, end: 20000918
  3. ACCUTANE [Suspect]
     Dates: start: 20000209, end: 20000316
  4. ACCUTANE [Suspect]
     Dates: start: 20000316, end: 20000412

REACTIONS (11)
  - CROHN'S DISEASE [None]
  - LIP DRY [None]
  - DRY SKIN [None]
  - OBESITY [None]
  - INJURY [None]
  - DEPRESSION [None]
  - SUICIDAL IDEATION [None]
  - BIPOLAR DISORDER [None]
  - IMMUNODEFICIENCY [None]
  - COLITIS ULCERATIVE [None]
  - EPISTAXIS [None]
